FAERS Safety Report 8957390 (Version 1)
Quarter: 2012Q4

REPORT INFORMATION
  Report Type: Report from Study
  Country: US (occurrence: US)
  Receive Date: 20121211
  Receipt Date: 20121211
  Transmission Date: 20130627
  Serious: Yes (Hospitalization)
  Sender: FDA-Public Use
  Company Number: US-ROCHE-1165947

PATIENT
  Age: 58 Year
  Sex: Female
  Weight: 90 kg

DRUGS (13)
  1. PEG-INTERFERON ALFA 2A [Suspect]
     Indication: HEPATITIS C
     Route: 058
     Dates: start: 20121102, end: 20121109
  2. RIBAVIRIN [Suspect]
     Indication: HEPATITIS C
     Route: 048
     Dates: start: 20121102, end: 20121112
  3. VX-950 [Suspect]
     Indication: HEPATITIS C
     Route: 048
     Dates: start: 20121102, end: 20121112
  4. VX-222 [Suspect]
     Indication: HEPATITIS C
     Route: 048
     Dates: start: 20121102, end: 20121112
  5. OMEPRAZOLE [Concomitant]
  6. METFORMIN [Concomitant]
  7. ATENOLOL [Concomitant]
  8. SYNTHROID [Concomitant]
  9. LISINOPRIL [Concomitant]
  10. SPIRONOLACTONE [Concomitant]
  11. LISINOPRIL/HCTZ [Concomitant]
  12. MULTIVITAMIN (BRAND UNKNOWN) [Concomitant]
  13. VITAMIN D2 [Concomitant]

REACTIONS (4)
  - Myositis [Recovered/Resolved]
  - Haematochezia [Recovered/Resolved]
  - Tendon disorder [Recovered/Resolved]
  - Pancytopenia [Recovered/Resolved]
